FAERS Safety Report 12085404 (Version 3)
Quarter: 2016Q1

REPORT INFORMATION
  Report Type: Spontaneous
  Country: FR (occurrence: FR)
  Receive Date: 20160217
  Receipt Date: 20160303
  Transmission Date: 20160526
  Serious: Yes (Other)
  Sender: FDA-Public Use
  Company Number: FR-SYMPLMED PHARMACEUTICALS-2016SYMPLMED000142

PATIENT

DRUGS (1)
  1. COVERSYL [Suspect]
     Active Substance: PERINDOPRIL
     Indication: HYPERTENSION
     Dosage: 2.5 MG, QD
     Route: 048
     Dates: start: 201406, end: 20160210

REACTIONS (5)
  - Retinal vein occlusion [Unknown]
  - Retinal aneurysm [Unknown]
  - Cystoid macular oedema [Unknown]
  - Left ventricular dysfunction [Unknown]
  - Visual impairment [Unknown]

NARRATIVE: CASE EVENT DATE: 20160204
